FAERS Safety Report 6141630-9 (Version None)
Quarter: 2009Q2

REPORT INFORMATION
  Report Type: 
  Country: None (occurrence: None)
  Receive Date: 20090402
  Receipt Date: 20090327
  Transmission Date: 20091009
  Serious: Yes (Other)
  Sender: FDA-Public Use
  Company Number: B0566027A

PATIENT

DRUGS (2)
  1. VALTREX [Suspect]
     Indication: HERPES ZOSTER
     Dosage: 250MG TWICE PER DAY
     Route: 048
  2. VICCLOX [Suspect]
     Indication: HERPES ZOSTER
     Route: 042

REACTIONS (5)
  - DECREASED APPETITE [None]
  - DEPRESSED LEVEL OF CONSCIOUSNESS [None]
  - DRUG PRESCRIBING ERROR [None]
  - OVERDOSE [None]
  - VOMITING [None]
